FAERS Safety Report 22023516 (Version 1)
Quarter: 2023Q1

REPORT INFORMATION
  Report Type: Report from Study
  Country: US (occurrence: US)
  Receive Date: 20230223
  Receipt Date: 20230223
  Transmission Date: 20230417
  Serious: Yes (Hospitalization, Other)
  Sender: FDA-Public Use
  Company Number: US-JNJFOC-20230241325

PATIENT

DRUGS (5)
  1. DARATUMUMAB [Suspect]
     Active Substance: DARATUMUMAB
     Indication: Amyloidosis
     Route: 041
  2. DARATUMUMAB [Suspect]
     Active Substance: DARATUMUMAB
     Route: 041
  3. DARATUMUMAB [Suspect]
     Active Substance: DARATUMUMAB
     Route: 041
  4. BORTEZOMIB [Suspect]
     Active Substance: BORTEZOMIB
     Indication: Amyloidosis
     Dosage: DAYS 1, 8, AND 15 EVERY 4 WEEKS FOR UP TO 18 CYCLE
     Route: 058
  5. DEXAMETHASONE [Suspect]
     Active Substance: DEXAMETHASONE
     Indication: Amyloidosis
     Route: 065

REACTIONS (9)
  - Pneumothorax spontaneous [Unknown]
  - Respiratory tract infection [Unknown]
  - Arrhythmia [Unknown]
  - Neutropenia [Unknown]
  - Infusion related reaction [Unknown]
  - Haematotoxicity [Unknown]
  - Infection [Unknown]
  - Off label use [Unknown]
  - Intentional product use issue [Unknown]
